FAERS Safety Report 8608638-2 (Version None)
Quarter: 2012Q3

REPORT INFORMATION
  Report Type: 
  Country: None (occurrence: None)
  Receive Date: 20120803
  Receipt Date: 20120720
  Transmission Date: 20120928
  Serious: Yes (Hospitalization, Other)
  Sender: FDA-Public Use
  Company Number: FR-1191674

PATIENT
  Sex: Female

DRUGS (3)
  1. AZOPT [Suspect]
     Dosage: OPHTHALMIC
     Route: 047
  2. ACETAMINOPHEN [Concomitant]
  3. TRAVATAN [Suspect]
     Dosage: OPHTHALMIC
     Route: 047
     Dates: start: 20120110, end: 20120220

REACTIONS (6)
  - RESPIRATORY DISTRESS [None]
  - DIAPHRAGMATIC PARALYSIS [None]
  - CONSTIPATION [None]
  - MUSCULOSKELETAL PAIN [None]
  - PHRENIC NERVE PARALYSIS [None]
  - DYSPNOEA [None]
